FAERS Safety Report 8855130 (Version 2)
Quarter: 2012Q4

REPORT INFORMATION
  Report Type: 
  Country: US (occurrence: US)
  Receive Date: 20121023
  Receipt Date: 20121119
  Transmission Date: 20130627
  Serious: Yes (Hospitalization)
  Sender: FDA-Public Use
  Company Number: US-UCBSA-069187

PATIENT
  Age: 54 Year
  Sex: Female

DRUGS (2)
  1. CIMZIA [Suspect]
     Indication: CROHN^S DISEASE
     Dates: start: 201210
  2. METHADONE [Suspect]

REACTIONS (2)
  - Dehydration [Recovered/Resolved]
  - Feeling abnormal [Not Recovered/Not Resolved]
